FAERS Safety Report 25192599 (Version 1)
Quarter: 2025Q2

REPORT INFORMATION
  Report Type: Spontaneous
  Country: DE (occurrence: DE)
  Receive Date: 20250414
  Receipt Date: 20250414
  Transmission Date: 20250717
  Serious: Yes (Life-Threatening, Other)
  Sender: PFIZER
  Company Number: DE-PFIZER INC-PV202500042972

PATIENT
  Age: 3 Year
  Sex: Male

DRUGS (1)
  1. SIROLIMUS [Suspect]
     Active Substance: SIROLIMUS
     Indication: Arteriovenous malformation

REACTIONS (2)
  - Pyrexia [Unknown]
  - Off label use [Unknown]
